FAERS Safety Report 20561008 (Version 1)
Quarter: 2022Q1

REPORT INFORMATION
  Report Type: Report from Study
  Country: DE (occurrence: DE)
  Receive Date: 20220307
  Receipt Date: 20220307
  Transmission Date: 20220423
  Serious: Yes (Death, Life-Threatening, Hospitalization, Other)
  Sender: FDA-Public Use
  Company Number: DE-ONCOPEPPR-00903

PATIENT
  Age: 49 Year
  Sex: Female

DRUGS (9)
  1. DEXAMETHASONE [Suspect]
     Active Substance: DEXAMETHASONE
     Indication: Plasma cell myeloma
     Dosage: 40 MILLIGRAM
     Route: 048
     Dates: start: 20211210, end: 20211217
  2. MELPHALAN FLUFENAMIDE HYDROCHLORIDE [Suspect]
     Active Substance: MELPHALAN FLUFENAMIDE HYDROCHLORIDE
     Indication: Plasma cell myeloma
     Dosage: 40 MILLIGRAM, QD (QD)
     Route: 042
     Dates: start: 20211210, end: 20211210
  3. ACYCLOVIR [Concomitant]
     Active Substance: ACYCLOVIR
     Indication: Prophylaxis
     Dosage: 400 MILLIGRAM, BID (1-0-1)
     Route: 048
     Dates: start: 20211220, end: 20211222
  4. TORSEMIDE [Concomitant]
     Active Substance: TORSEMIDE
     Dosage: 5 MILLIGRAM, QD (1-0-0)
     Dates: start: 20191110, end: 20211222
  5. SULFAMETHOXAZOLE\TRIMETHOPRIM [Concomitant]
     Active Substance: SULFAMETHOXAZOLE\TRIMETHOPRIM
     Indication: Prophylaxis
     Dosage: 960 MILLIGRAM, QD (1-0-0)
     Route: 048
     Dates: start: 20210222, end: 20211222
  6. METOPROLOL SUCCINATE [Concomitant]
     Active Substance: METOPROLOL SUCCINATE
     Indication: Hypertension
     Dosage: 47.5 MILLIGRAM, QD
     Dates: start: 202112
  7. Mst [Concomitant]
     Dosage: 70 MILLIGRAM, QD (70-0-50MG)
     Dates: start: 20191107, end: 20211220
  8. Mst [Concomitant]
     Dosage: 50 MILLIGRAM, QD (70-0-50MG)
     Dates: start: 20191107, end: 20211220
  9. METOPROLOL [Concomitant]
     Active Substance: METOPROLOL
     Dosage: 47.5 MILLIGRAM, BID (1-0-1)
     Dates: start: 20210215, end: 20211222

REACTIONS (2)
  - Sepsis [Fatal]
  - Pancytopenia [Not Recovered/Not Resolved]

NARRATIVE: CASE EVENT DATE: 20211220
